FAERS Safety Report 17699413 (Version 1)
Quarter: 2020Q2

REPORT INFORMATION
  Report Type: Spontaneous
  Country: CN (occurrence: CN)
  Receive Date: 20200423
  Receipt Date: 20200423
  Transmission Date: 20200714
  Serious: Yes (Hospitalization)
  Sender: FDA-Public Use
  Company Number: CN-PFIZER INC-2020160202

PATIENT
  Age: 70 Year
  Sex: Female
  Weight: 45 kg

DRUGS (6)
  1. LYRICA [Suspect]
     Active Substance: PREGABALIN
     Dosage: 75 MG, 3X/DAY
     Route: 048
     Dates: start: 20200307, end: 20200318
  2. LYRICA [Suspect]
     Active Substance: PREGABALIN
     Dosage: 37.5 MG, 2X/DAY
     Route: 048
     Dates: start: 20200323, end: 20200323
  3. SEROQUEL [Suspect]
     Active Substance: QUETIAPINE FUMARATE
     Indication: ILLUSION
     Dosage: 50 MG, 1X/DAY
     Route: 048
     Dates: start: 20200415, end: 20200415
  4. LYRICA [Suspect]
     Active Substance: PREGABALIN
     Dosage: 75 MG, 2X/DAY
     Route: 048
     Dates: start: 20200324, end: 20200415
  5. VENLAFAXINE HYDROCHLORIDE. [Suspect]
     Active Substance: VENLAFAXINE HYDROCHLORIDE
     Indication: MENTAL DISORDER
     Dosage: 75 MG, 1X/DAY
     Route: 048
     Dates: start: 20200316, end: 20200415
  6. LYRICA [Suspect]
     Active Substance: PREGABALIN
     Indication: SPINAL CORD INJURY
     Dosage: 75 MG, 2X/DAY
     Route: 048
     Dates: start: 20200303, end: 20200306

REACTIONS (6)
  - Somnolence [Recovering/Resolving]
  - Visual impairment [Recovering/Resolving]
  - Apnoea [Recovering/Resolving]
  - Sleep talking [Recovering/Resolving]
  - Indifference [Recovering/Resolving]
  - Confusional state [Recovering/Resolving]

NARRATIVE: CASE EVENT DATE: 202003
